FAERS Safety Report 25262528 (Version 2)
Quarter: 2025Q3

REPORT INFORMATION
  Report Type: Report from Study
  Country: CA (occurrence: CA)
  Receive Date: 20250502
  Receipt Date: 20250927
  Transmission Date: 20251021
  Serious: Yes (Hospitalization)
  Sender: ABBVIE
  Company Number: CA-ABBVIE-6262369

PATIENT
  Sex: Female

DRUGS (2)
  1. RINVOQ [Suspect]
     Active Substance: UPADACITINIB
     Indication: Rheumatoid arthritis
     Dosage: FORM STRENGTH:15MG
     Route: 048
     Dates: start: 20210930
  2. RINVOQ [Suspect]
     Active Substance: UPADACITINIB
     Indication: Rheumatoid arthritis
     Route: 048
     Dates: start: 202506

REACTIONS (6)
  - Cellulitis [Unknown]
  - Cough [Unknown]
  - Fatigue [Unknown]
  - Paronychia [Unknown]
  - Ear infection [Unknown]
  - Ear haemorrhage [Unknown]
